FAERS Safety Report 11234940 (Version 2)
Quarter: 2015Q3

REPORT INFORMATION
  Report Type: Spontaneous
  Country: BR (occurrence: BR)
  Receive Date: 20150702
  Receipt Date: 20150715
  Transmission Date: 20151125
  Serious: Yes (Hospitalization, Other)
  Sender: FDA-Public Use
  Company Number: BR-SA-2015SA093024

PATIENT
  Age: 68 Year
  Sex: Female
  Weight: 63 kg

DRUGS (6)
  1. DIOSMIN [Concomitant]
     Active Substance: DIOSMIN
     Indication: VARICOSE VEIN
     Dosage: DOSE: 1 ENVELOPE DAILY
     Dates: start: 2013
  2. LANTUS [Suspect]
     Active Substance: INSULIN GLARGINE
     Indication: TYPE 2 DIABETES MELLITUS
     Route: 065
     Dates: start: 2005
  3. CRESTOR [Concomitant]
     Active Substance: ROSUVASTATIN CALCIUM
     Indication: BLOOD CHOLESTEROL
     Dates: start: 2013
  4. OSTEOBAN [Concomitant]
     Indication: BONE DISORDER
     Dosage: 1 AMPOULE
  5. ASPIRIN. [Concomitant]
     Active Substance: ASPIRIN
     Indication: ANGIOPATHY
     Dates: start: 2013
  6. CALCIUM CITRATE [Concomitant]
     Active Substance: CALCIUM CITRATE
     Dates: start: 2013

REACTIONS (35)
  - Paraesthesia [Not Recovered/Not Resolved]
  - Fatigue [Not Recovered/Not Resolved]
  - Nervousness [Recovered/Resolved]
  - Retinopathy [Not Recovered/Not Resolved]
  - Condition aggravated [Not Recovered/Not Resolved]
  - Oedema peripheral [Not Recovered/Not Resolved]
  - Pain in extremity [Not Recovered/Not Resolved]
  - Thirst [Not Recovered/Not Resolved]
  - Pollakiuria [Not Recovered/Not Resolved]
  - Increased appetite [Not Recovered/Not Resolved]
  - Condition aggravated [Unknown]
  - Pyrexia [Recovered/Resolved]
  - Cataract [Recovering/Resolving]
  - Malaise [Recovered/Resolved]
  - Post procedural infection [Recovered/Resolved]
  - Retinal haemorrhage [Recovering/Resolving]
  - Dengue fever [Recovered/Resolved]
  - Decreased appetite [Recovered/Resolved]
  - Foot fracture [Recovered/Resolved]
  - Fungal infection [Recovered/Resolved]
  - Ill-defined disorder [Recovered/Resolved]
  - Urinary tract infection [Recovered/Resolved]
  - Dysuria [Recovered/Resolved]
  - Dysgeusia [Recovered/Resolved]
  - Angiopathy [Not Recovered/Not Resolved]
  - Fatigue [Recovered/Resolved]
  - Hyperaesthesia [Not Recovered/Not Resolved]
  - Nausea [Recovered/Resolved]
  - Nail discolouration [Recovered/Resolved]
  - Wrong technique in product usage process [Unknown]
  - Myopia [Unknown]
  - Hyperglycaemia [Recovered/Resolved]
  - Visual impairment [Not Recovered/Not Resolved]
  - Asthenia [Recovered/Resolved]
  - Blood glucose increased [Not Recovered/Not Resolved]

NARRATIVE: CASE EVENT DATE: 2006
